FAERS Safety Report 6647814-5 (Version None)
Quarter: 2010Q1

REPORT INFORMATION
  Report Type: 
  Country: None (occurrence: None)
  Receive Date: 20100318
  Receipt Date: 20100311
  Transmission Date: 20100710
  Serious: Yes (Other)
  Sender: FDA-Public Use
  Company Number: 2010SP006243

PATIENT
  Age: 67 Year
  Sex: Female

DRUGS (8)
  1. MIRTAZAPINE [Suspect]
     Indication: DEPRESSION
     Dosage: 15 MG;HS;PO
     Route: 048
     Dates: start: 20091010
  2. MIRTAZAPINE [Suspect]
     Indication: INSOMNIA
     Dosage: 15 MG;HS;PO
     Route: 048
     Dates: start: 20091010
  3. ZOLPIDEM TARTRATE [Suspect]
     Indication: INSOMNIA
     Dosage: 10 MG;QD;PO
     Route: 048
     Dates: start: 20090829, end: 20091017
  4. BROTIZOLAM [Concomitant]
  5. ITOPRIDE HYDROCHLORIDE [Concomitant]
  6. LUVOX [Concomitant]
  7. PAXIL [Suspect]
  8. . [Concomitant]

REACTIONS (11)
  - ANTEROGRADE AMNESIA [None]
  - BACK PAIN [None]
  - CHEST PAIN [None]
  - COMPRESSION FRACTURE [None]
  - CONTUSION [None]
  - DRUG INTERACTION [None]
  - FALL [None]
  - FLANK PAIN [None]
  - GAIT DISTURBANCE [None]
  - INSOMNIA [None]
  - NAUSEA [None]
